FAERS Safety Report 9817963 (Version 1)
Quarter: 2014Q1

REPORT INFORMATION
  Report Type: Spontaneous
  Country: US (occurrence: US)
  Receive Date: 20140115
  Receipt Date: 20140115
  Transmission Date: 20141002
  Serious: No
  Sender: FDA-Public Use
  Company Number: US-B.I. PHARMACEUTICALS,INC./RIDGEFIELD-2014-BI-00354BP

PATIENT
  Age: 85 Year
  Sex: Male
  Weight: 65 kg

DRUGS (13)
  1. SPIRIVA [Suspect]
     Indication: CHRONIC OBSTRUCTIVE PULMONARY DISEASE
     Dosage: 18 MCG
     Route: 055
     Dates: start: 2007
  2. SPIRIVA [Suspect]
     Dosage: 18 MCG
     Route: 048
     Dates: start: 2007
  3. FLECANAIDE [Concomitant]
     Indication: HEART RATE INCREASED
     Dosage: 100 MG
     Route: 048
  4. VERAPAMIL [Concomitant]
     Indication: HEART RATE INCREASED
     Dosage: 240 MG
     Route: 048
  5. PROTONIX [Concomitant]
     Dosage: 40 MG
     Route: 048
  6. LASIX [Concomitant]
     Dosage: 40 MG
     Route: 048
  7. LEVOTHYROXINE [Concomitant]
     Dosage: 88 MCG
     Route: 048
  8. LOVASTATIN [Concomitant]
     Dosage: 20 MG
     Route: 048
  9. SYMBICORT [Concomitant]
     Indication: CHRONIC OBSTRUCTIVE PULMONARY DISEASE
     Dosage: (INHALATION SPRAY) STRENGTH: 160/4.5; DAILY DOSE: 640/18
     Route: 055
  10. ALBUTEROL VIA NEBULIZER [Concomitant]
     Indication: CHRONIC OBSTRUCTIVE PULMONARY DISEASE
     Dosage: 5 MG
     Route: 055
  11. VITAMIN D [Concomitant]
     Indication: FATIGUE
     Dosage: STRENGTH: 1000 UNITS; DAILY DOSE: 1000 UNITS
     Route: 048
  12. ECOTRIN [Concomitant]
     Dosage: 81 MG
     Route: 048
  13. PREDNISONE [Concomitant]
     Indication: CHRONIC OBSTRUCTIVE PULMONARY DISEASE
     Dosage: 20 MG
     Route: 048

REACTIONS (6)
  - Dyspnoea [Recovered/Resolved]
  - Dysphagia [Recovered/Resolved]
  - Swollen tongue [Recovered/Resolved]
  - Dizziness [Recovered/Resolved]
  - Anxiety [Not Recovered/Not Resolved]
  - Incorrect route of drug administration [Recovered/Resolved]
